FAERS Safety Report 9340615 (Version 1)
Quarter: 2013Q2

REPORT INFORMATION
  Report Type: Spontaneous
  Country: GB (occurrence: GB)
  Receive Date: 20130610
  Receipt Date: 20130610
  Transmission Date: 20140414
  Serious: Yes (Other)
  Sender: FDA-Public Use
  Company Number: GB-ASTRAZENECA-2013SE38442

PATIENT
  Sex: Female

DRUGS (11)
  1. SEROQUEL XL [Suspect]
     Route: 048
  2. SERTRALINE [Concomitant]
  3. LITHIUM CARBONATE [Concomitant]
  4. PARACETAMOL [Concomitant]
  5. VENTOLIN [Concomitant]
     Dosage: EVOHALER 100 MICRO GM WHEN REQUIRED
  6. AMLODIPINE [Concomitant]
  7. LEVOTHYROXINE [Concomitant]
  8. LEVOTHYROXINE [Concomitant]
  9. SIMVASTATIN [Concomitant]
  10. ASPIRIN [Concomitant]
  11. DIAZEPAM [Concomitant]

REACTIONS (9)
  - Radial nerve palsy [Unknown]
  - Tardive dyskinesia [Unknown]
  - Balance disorder [Unknown]
  - Disturbance in attention [Unknown]
  - Glossitis [Unknown]
  - Salivary hypersecretion [Unknown]
  - Cough [Unknown]
  - Activities of daily living impaired [Unknown]
  - Tremor [Unknown]
